FAERS Safety Report 6667611-4 (Version None)
Quarter: 2010Q2

REPORT INFORMATION
  Report Type: 
  Country: None (occurrence: None)
  Receive Date: 20100405
  Receipt Date: 20100329
  Transmission Date: 20101027
  Serious: Yes (Death)
  Sender: FDA-Public Use
  Company Number: US-ELI_LILLY_AND_COMPANY-US201003008469

PATIENT
  Age: 24 Year
  Sex: Male

DRUGS (1)
  1. ZYPREXA [Suspect]
     Indication: PARANOIA
     Dosage: UNK, UNK
     Dates: start: 20101001

REACTIONS (9)
  - COMPLETED SUICIDE [None]
  - DEPRESSION [None]
  - DYSGEUSIA [None]
  - INSOMNIA [None]
  - LETHARGY [None]
  - MENTAL IMPAIRMENT [None]
  - OBSESSIVE THOUGHTS [None]
  - PARAESTHESIA [None]
  - PARANOIA [None]
